FAERS Safety Report 9047396 (Version 1)
Quarter: 2013Q1

REPORT INFORMATION
  Report Type: Report from Study
  Country: US (occurrence: US)
  Receive Date: 20130201
  Receipt Date: 20130201
  Transmission Date: 20140127
  Serious: No
  Sender: FDA-Public Use
  Company Number: US-ABBOTT-12P-163-1019729-00

PATIENT
  Age: 53 Year
  Sex: Female

DRUGS (11)
  1. HUMIRA [Suspect]
     Indication: COLITIS ULCERATIVE
     Route: 058
     Dates: start: 20121023, end: 20121204
  2. IMURAN [Concomitant]
     Indication: COLITIS ULCERATIVE
  3. K-DUR POTASSIUM [Concomitant]
     Indication: PRODUCT USED FOR UNKNOWN INDICATION
  4. ISOSORBIDE MONONITRATE ER [Concomitant]
     Indication: CARDIOVASCULAR EVENT PROPHYLAXIS
  5. ISOSORBIDE MONONITRATE ER [Concomitant]
  6. LASIX [Concomitant]
     Indication: CARDIOVASCULAR EVENT PROPHYLAXIS
  7. ZOLOFT [Concomitant]
     Indication: DEPRESSION
  8. FLEXERIL [Concomitant]
     Indication: PRODUCT USED FOR UNKNOWN INDICATION
  9. NEURONTIN [Concomitant]
     Indication: SPINAL OPERATION
  10. LORTAB [Concomitant]
     Indication: NERVOUS SYSTEM DISORDER
     Dosage: 10MG/500MG
  11. COLAZAL [Concomitant]
     Indication: FUNCTIONAL GASTROINTESTINAL DISORDER

REACTIONS (4)
  - Nasopharyngitis [Not Recovered/Not Resolved]
  - Dyspnoea [Recovering/Resolving]
  - Chest discomfort [Unknown]
  - Pain in extremity [Unknown]
